FAERS Safety Report 8334841-5 (Version None)
Quarter: 2012Q2

REPORT INFORMATION
  Report Type: 
  Country: None (occurrence: None)
  Receive Date: 20120503
  Receipt Date: 20120426
  Transmission Date: 20120825
  Serious: Yes (Hospitalization)
  Sender: FDA-Public Use
  Company Number: US-BAYER-201032459NA

PATIENT
  Age: 44 Year
  Sex: Female
  Weight: 117.91 kg

DRUGS (8)
  1. BEXTRA [Concomitant]
  2. LEVAQUIN [Concomitant]
     Dosage: 500 MG, UNK
     Dates: start: 20020524
  3. PREDNISONE TAB [Concomitant]
     Dosage: 20 MG, UNK
     Dates: start: 20020606
  4. PHENERGAN EXPECTORANT W/ CODEINE [Concomitant]
     Dosage: UNK
     Dates: start: 20020524
  5. YASMIN [Suspect]
     Indication: ORAL CONTRACEPTION
     Dosage: UNK
     Route: 065
     Dates: start: 20020413, end: 20020726
  6. NSAID'S [Concomitant]
  7. ASCORBIC ACID [Concomitant]
  8. RELAFEN [Concomitant]
     Dosage: 750 MG, UNK
     Dates: start: 20020122

REACTIONS (3)
  - INJURY [None]
  - PULMONARY EMBOLISM [None]
  - PAIN [None]
